FAERS Safety Report 16763576 (Version 1)
Quarter: 2019Q3

REPORT INFORMATION
  Report Type: Spontaneous
  Country: JP (occurrence: JP)
  Receive Date: 20190902
  Receipt Date: 20190902
  Transmission Date: 20191005
  Serious: Yes (Other)
  Sender: FDA-Public Use
  Company Number: JP-PFIZER INC-2019370392

PATIENT
  Age: 75 Year
  Sex: Female

DRUGS (2)
  1. CISPLATIN PFIZER [Suspect]
     Active Substance: CISPLATIN
     Indication: GALLBLADDER CANCER
     Route: 048
  2. GEMCITABINE HYDROCHLORIDE. [Suspect]
     Active Substance: GEMCITABINE HYDROCHLORIDE

REACTIONS (1)
  - Body temperature decreased [Unknown]
